FAERS Safety Report 8052672-0 (Version None)
Quarter: 2012Q1

REPORT INFORMATION
  Report Type: 
  Country: None (occurrence: None)
  Receive Date: 20120118
  Receipt Date: 20120118
  Transmission Date: 20120608
  Serious: Yes (Other)
  Sender: FDA-Public Use
  Company Number: None

PATIENT
  Age: 54 Year
  Sex: Female
  Weight: 136.07 kg

DRUGS (1)
  1. METHYLENE BLUE [Suspect]

REACTIONS (3)
  - IMPAIRED HEALING [None]
  - THERMAL BURN [None]
  - PAIN [None]
